FAERS Safety Report 8273952-X (Version None)
Quarter: 2012Q2

REPORT INFORMATION
  Report Type: 
  Country: None (occurrence: None)
  Receive Date: 20120411
  Receipt Date: 20120402
  Transmission Date: 20120825
  Serious: Yes (Hospitalization)
  Sender: FDA-Public Use
  Company Number: FR-ASTRAZENECA-2012SE22254

PATIENT
  Age: 16079 Day
  Sex: Female

DRUGS (8)
  1. OFLOXACIN [Suspect]
     Indication: URINARY TRACT INFECTION
     Route: 048
     Dates: start: 20120113, end: 20120117
  2. FLUTICASONE PROPIONATE/SALMETEROL [Concomitant]
     Route: 055
  3. SINGULAIR [Concomitant]
     Route: 048
  4. OLMESARTAN MEDOXOMIL [Concomitant]
     Indication: HYPERTENSION
     Route: 048
     Dates: start: 20110101
  5. CRESTOR [Suspect]
     Route: 048
     Dates: start: 20111101
  6. GLUCOPHAGE [Concomitant]
     Indication: TYPE 2 DIABETES MELLITUS
     Route: 048
  7. DIAMICRON [Concomitant]
     Indication: TYPE 2 DIABETES MELLITUS
     Route: 048
  8. PREDNISOLONE [Concomitant]

REACTIONS (2)
  - MYALGIA [None]
  - MUSCLE RUPTURE [None]
